FAERS Safety Report 5556748-9 (Version None)
Quarter: 2007Q4

REPORT INFORMATION
  Report Type: 
  Country: None (occurrence: None)
  Receive Date: 20071128
  Receipt Date: 20070809
  Transmission Date: 20080405
  Serious: Yes (Hospitalization)
  Sender: FDA-Public Use
  Company Number: CIP07001574

PATIENT
  Sex: Female

DRUGS (20)
  1. ACTONEL [Suspect]
     Indication: OSTEOPOROSIS
     Dosage: 30 MG, 1/WEEK, ORAL
     Route: 048
     Dates: start: 20011119, end: 20031201
  2. ACTONEL [Suspect]
     Indication: OSTEOPOROSIS
     Dosage: 35 MG, 1/WEEK, ORAL
     Route: 048
  3. FOSAMAX [Suspect]
     Indication: OSTEOPOROSIS
     Dosage: 70 MG, 1/WEEK,
     Dates: start: 20031210, end: 20040907
  4. PREDNISONE TAB [Concomitant]
  5. METHOTREXATE [Concomitant]
  6. HYDROXYCHLOROQUINE SULFATE [Concomitant]
  7. ESTRADIOL [Concomitant]
  8. PROPOXACET-N (PARACETAMOL, DEXTROPROPOXYPHENE HYDROCHLORIDE) [Concomitant]
  9. RESTASIS (CICLOSPORIN) [Concomitant]
  10. LIPITOR [Concomitant]
  11. FLURBIREN (FLURBIPROFEN SODIUM) [Concomitant]
  12. TRIMOX (TRIMETHOPRIM, SULFAMETHOXAZOLE) [Concomitant]
  13. ESTRATEST H.S. [Concomitant]
  14. DILTIA XT (DILTIAZEM HYDROCHLORIDE) [Concomitant]
  15. PENICILLIN-VK [Concomitant]
  16. APAP CODEINE (CODEINE PHOSPHATE, PARACETAMOL) [Concomitant]
  17. OXYCODONE/APAP (OXYCODONE, PARACETAMOL) [Concomitant]
  18. FOLIC ACID [Concomitant]
  19. MISOPROSTOL [Concomitant]
  20. LISINOPRIL [Concomitant]

REACTIONS (20)
  - ABDOMINAL PAIN [None]
  - DIARRHOEA [None]
  - EXOSTOSIS [None]
  - FRACTURE MALUNION [None]
  - GLOSSITIS [None]
  - IMPAIRED HEALING [None]
  - JAW CYST [None]
  - JAW FRACTURE [None]
  - MALNUTRITION [None]
  - ORAL CANDIDIASIS [None]
  - ORAL INTAKE REDUCED [None]
  - OSTEONECROSIS [None]
  - PAIN IN JAW [None]
  - PARAESTHESIA ORAL [None]
  - POSTOPERATIVE ADHESION [None]
  - RESORPTION BONE INCREASED [None]
  - STAPHYLOCOCCAL OSTEOMYELITIS [None]
  - TOOTH EXTRACTION [None]
  - VOMITING [None]
  - WEIGHT DECREASED [None]
